FAERS Safety Report 7052009-X (Version None)
Quarter: 2010Q4

REPORT INFORMATION
  Report Type: 
  Country: None (occurrence: None)
  Receive Date: 20101019
  Receipt Date: 20101012
  Transmission Date: 20110411
  Serious: Yes (Disabling, Other)
  Sender: FDA-Public Use
  Company Number: US-ALLERGAN-1013171US

PATIENT
  Age: 38 Year
  Sex: Female

DRUGS (1)
  1. BOTOX COSMETIC [Suspect]
     Indication: SKIN WRINKLING
     Dosage: 30 UNITS, SINGLE
     Route: 030
     Dates: start: 20100904, end: 20100904

REACTIONS (14)
  - AGEUSIA [None]
  - ANOSMIA [None]
  - DYSPHEMIA [None]
  - HEMIPLEGIA [None]
  - HYPOAESTHESIA [None]
  - MUSCLE SPASMS [None]
  - MUSCLE TWITCHING [None]
  - PHARYNGEAL OEDEMA [None]
  - RASH [None]
  - RETCHING [None]
  - TORTICOLLIS [None]
  - URTICARIA [None]
  - VIITH NERVE PARALYSIS [None]
  - WRONG TECHNIQUE IN DRUG USAGE PROCESS [None]
